FAERS Safety Report 9618636 (Version 2)
Quarter: 2013Q4

REPORT INFORMATION
  Report Type: Spontaneous
  Country: US (occurrence: US)
  Receive Date: 20131014
  Receipt Date: 20131111
  Transmission Date: 20140711
  Serious: No
  Sender: FDA-Public Use
  Company Number: US-PFIZER INC-2013293913

PATIENT
  Age: 69 Year
  Sex: Female
  Weight: 111 kg

DRUGS (21)
  1. LYRICA [Suspect]
     Indication: NEURALGIA
     Dosage: 75 MG, 2X/DAY
     Route: 048
     Dates: start: 20130513
  2. LYRICA [Suspect]
     Indication: RADICULOPATHY
     Dosage: 150 MG, 2X/DAY
     Route: 048
     Dates: end: 20131010
  3. LYRICA [Suspect]
     Indication: OSTEOARTHRITIS
     Dosage: 50 MG, 2X/DAY
     Route: 048
     Dates: start: 201310
  4. LYRICA [Suspect]
     Indication: MYOFASCIAL PAIN SYNDROME
  5. LYRICA [Suspect]
     Indication: NEURITIS
  6. LYRICA [Suspect]
     Indication: BACK PAIN
  7. LYRICA [Suspect]
     Indication: SPINAL COLUMN STENOSIS
  8. LYRICA [Suspect]
     Indication: INTERVERTEBRAL DISC DEGENERATION
  9. BYSTOLIC [Concomitant]
     Indication: HYPERTENSION
     Dosage: UNK
  10. CARTIA [Concomitant]
     Indication: HYPERTENSION
     Dosage: UNK
  11. LASIX [Concomitant]
     Indication: CONGENITAL CYSTIC KIDNEY DISEASE
     Dosage: UNK
  12. ZANAFLEX [Concomitant]
     Dosage: 4 MG, 2X/DAY
  13. LIDODERM PATCH [Concomitant]
  14. COUMADIN ^BOOTS^ [Concomitant]
  15. SYNTHROID [Concomitant]
  16. NEXIUM [Concomitant]
  17. LISINOPRIL [Concomitant]
  18. ALLOPURINOL [Concomitant]
  19. B12 [Concomitant]
  20. GABAPENTIN [Concomitant]
     Dosage: 1200 MG, Q12HOURS
  21. IRON [Concomitant]

REACTIONS (2)
  - Off label use [Unknown]
  - Alopecia [Not Recovered/Not Resolved]
